FAERS Safety Report 10632925 (Version 1)
Quarter: 2014Q4

REPORT INFORMATION
  Report Type: Spontaneous
  Country: US (occurrence: US)
  Receive Date: 20141205
  Receipt Date: 20141205
  Transmission Date: 20150529
  Serious: No
  Sender: FDA-Public Use
  Company Number: US-BRISTOL-MYERS SQUIBB COMPANY-21421177

PATIENT
  Age: 70 Year
  Sex: Female
  Weight: 102.04 kg

DRUGS (1)
  1. ORENCIA [Suspect]
     Active Substance: ABATACEPT
     Indication: RHEUMATOID ARTHRITIS
     Dosage: FOR: INJECTION?1 DF: 7 SHOTS

REACTIONS (3)
  - Glossitis [Unknown]
  - Oral herpes [Unknown]
  - Ulcer [Unknown]
